FAERS Safety Report 25181677 (Version 1)
Quarter: 2025Q2

REPORT INFORMATION
  Report Type: Report from Study
  Country: GB (occurrence: GB)
  Receive Date: 20250410
  Receipt Date: 20250410
  Transmission Date: 20250716
  Serious: Yes (Hospitalization, Other)
  Sender: ALIMERA
  Company Number: GB-ALIMERA SCIENCES INC.-GB-IL-2016-002785

PATIENT
  Age: 54 Year
  Sex: Female

DRUGS (7)
  1. ILUVIEN [Suspect]
     Active Substance: FLUOCINOLONE ACETONIDE
     Indication: Diabetic retinal oedema
     Dosage: 0.25 MICROGRAM, QD - RIGHT EYE
     Route: 031
     Dates: start: 20150205
  2. RAMIPRIL [Concomitant]
     Active Substance: RAMIPRIL
     Indication: Prophylaxis
  3. CALCIUM\CHOLECALCIFEROL [Concomitant]
     Active Substance: CALCIUM\CHOLECALCIFEROL
     Indication: Product used for unknown indication
  4. INSULIN NOS [Concomitant]
     Active Substance: INSULIN NOS
     Indication: Type 1 diabetes mellitus
  5. RANITIDINE [Concomitant]
     Active Substance: RANITIDINE
     Indication: Product used for unknown indication
  6. oxytetracycline 250mg [Concomitant]
     Indication: Product used for unknown indication
  7. Lyrica 200mg [Concomitant]
     Indication: Product used for unknown indication

REACTIONS (3)
  - Vitreous haemorrhage [Recovered/Resolved]
  - Vitrectomy [Recovered/Resolved]
  - Intraocular pressure increased [Recovered/Resolved]

NARRATIVE: CASE EVENT DATE: 20160319
